FAERS Safety Report 7186025-4 (Version None)
Quarter: 2010Q4

REPORT INFORMATION
  Report Type: 
  Country: None (occurrence: None)
  Receive Date: 20101222
  Receipt Date: 20100614
  Transmission Date: 20110411
  Serious: No
  Sender: FDA-Public Use
  Company Number: US-AMGEN-TCS418436

PATIENT

DRUGS (2)
  1. ENBREL [Suspect]
     Indication: RHEUMATOID ARTHRITIS
     Dosage: 50 MG, QWK
     Route: 058
     Dates: start: 20050401
  2. UNSPECIFIED ANTIBIOTIC [Concomitant]
     Dosage: UNK UNK, UNK
     Dates: start: 20100501

REACTIONS (4)
  - AGEUSIA [None]
  - COUGH [None]
  - PNEUMONIA [None]
  - WEIGHT DECREASED [None]
